FAERS Safety Report 22194843 (Version 1)
Quarter: 2023Q2

REPORT INFORMATION
  Report Type: Report from Study
  Country: FR (occurrence: FR)
  Receive Date: 20230411
  Receipt Date: 20230411
  Transmission Date: 20230721
  Serious: Yes (Hospitalization, Other)
  Sender: FDA-Public Use
  Company Number: FR-SERVIER-S20005768

PATIENT

DRUGS (11)
  1. PEGASPARGASE [Suspect]
     Active Substance: PEGASPARGASE
     Indication: Acute lymphocytic leukaemia
     Dosage: 1800 IU ON D8, D36 AND D43
     Route: 042
     Dates: start: 20200220, end: 20200320
  2. VINCRISTINE SULFATE [Suspect]
     Active Substance: VINCRISTINE SULFATE
     Indication: Acute lymphocytic leukaemia
     Dosage: 1 MG, D1, D8, D29, D36
     Route: 042
     Dates: start: 20200213
  3. DEXAMETHASONE [Suspect]
     Active Substance: DEXAMETHASONE
     Indication: Acute lymphocytic leukaemia
     Dosage: 4 MG, D1 - D5, D29 - D33
     Route: 048
     Dates: start: 20200213
  4. MERCAPTOPURINE [Suspect]
     Active Substance: MERCAPTOPURINE
     Indication: Acute lymphocytic leukaemia
     Dosage: 35 MG, D1 - D21, D29 - D49
     Route: 048
     Dates: start: 20200213
  5. METHOTREXATE [Suspect]
     Active Substance: METHOTREXATE
     Indication: Acute lymphocytic leukaemia
     Dosage: 17.5 MG, D8, D15, D22, D36
     Route: 048
     Dates: start: 20200218
  6. METHOTREXATE [Suspect]
     Active Substance: METHOTREXATE
     Dosage: 12 MG, D2 AND D30
     Route: 037
     Dates: start: 20200214
  7. METHOTREXATE [Suspect]
     Active Substance: METHOTREXATE
     Dosage: 12 MG, D31
     Route: 037
     Dates: start: 20200402, end: 20200402
  8. CYTARABINE [Suspect]
     Active Substance: CYTARABINE
     Indication: Acute lymphocytic leukaemia
     Dosage: 50 MG, D31-D34, D38-D41
     Route: 042
     Dates: start: 20200402
  9. CYTARABINE [Suspect]
     Active Substance: CYTARABINE
     Dosage: 30 MG, D31
     Route: 037
     Dates: start: 20200402, end: 20200402
  10. CYCLOPHOSPHAMIDE [Suspect]
     Active Substance: CYCLOPHOSPHAMIDE
     Indication: Acute lymphocytic leukaemia
     Dosage: 700 MG, D29
     Route: 042
     Dates: start: 20200331, end: 20200331
  11. HYDROCORTISONE [Suspect]
     Active Substance: HYDROCORTISONE
     Indication: Acute lymphocytic leukaemia
     Dosage: 15 MG, D31
     Route: 037
     Dates: start: 20200402, end: 20200402

REACTIONS (2)
  - Pancreatitis [Recovered/Resolved]
  - Pyrexia [Recovered/Resolved]

NARRATIVE: CASE EVENT DATE: 20200309
